FAERS Safety Report 8589044-6 (Version None)
Quarter: 2012Q2

REPORT INFORMATION
  Report Type: 
  Country: None (occurrence: None)
  Receive Date: 20120423
  Receipt Date: 20090624
  Transmission Date: 20120825
  Serious: Yes (Other)
  Sender: FDA-Public Use
  Company Number: PHEH2009US06544

PATIENT
  Sex: Female

DRUGS (2)
  1. FEMARA [Suspect]
     Dates: start: 20080901
  2. ZOMETA [Suspect]
     Dates: start: 20090401

REACTIONS (5)
  - GAIT DISTURBANCE [None]
  - PAIN [None]
  - MALAISE [None]
  - FATIGUE [None]
  - ARTHRALGIA [None]
